FAERS Safety Report 5255662-6 (Version None)
Quarter: 2007Q1

REPORT INFORMATION
  Report Type: 
  Country: None (occurrence: None)
  Receive Date: 20070305
  Receipt Date: 20070221
  Transmission Date: 20070707
  Serious: Yes (Death)
  Sender: FDA-Public Use
  Company Number: CA-PFIZER INC-2006094960

PATIENT
  Sex: Female

DRUGS (9)
  1. SU-011,248 [Suspect]
     Indication: RENAL CELL CARCINOMA STAGE UNSPECIFIED
     Route: 048
  2. OXYCONTIN [Concomitant]
     Route: 048
  3. ETANERCEPT [Concomitant]
     Route: 058
     Dates: start: 20010101
  4. NORVASC [Concomitant]
     Route: 048
     Dates: start: 20060101
  5. VITAMIN CAP [Concomitant]
     Route: 048
     Dates: start: 19950101
  6. CALCIUM WITH VITAMIN D [Concomitant]
     Route: 048
     Dates: start: 20000101
  7. EFFEXOR [Concomitant]
     Route: 048
     Dates: start: 20051001
  8. LIPITOR [Concomitant]
     Route: 048
     Dates: start: 20060514
  9. LASIX [Concomitant]
     Route: 048
     Dates: start: 20060416

REACTIONS (2)
  - DISEASE PROGRESSION [None]
  - RENAL CELL CARCINOMA STAGE UNSPECIFIED [None]
